FAERS Safety Report 4638111-8 (Version None)
Quarter: 2005Q2

REPORT INFORMATION
  Report Type: 
  Country: None (occurrence: None)
  Receive Date: 20050415
  Receipt Date: 20050323
  Transmission Date: 20051028
  Serious: Yes (Hospitalization)
  Sender: FDA-Public Use
  Company Number: CAR_0010_2005

PATIENT
  Age: 68 Year
  Sex: Female
  Weight: 83.9154 kg

DRUGS (11)
  1. DICLOFENAC SODIUM [Suspect]
     Indication: OSTEOARTHRITIS
     Dosage: 75 MG BID PO
     Route: 048
     Dates: start: 20040101
  2. DICLOFENAC SODIUM [Suspect]
     Indication: OSTEOARTHRITIS
     Dosage: 75 MG BID PO
     Route: 048
     Dates: start: 20040301, end: 20050201
  3. ATENOLOL [Concomitant]
  4. LISINOPRIL [Concomitant]
  5. SYNTHROID [Concomitant]
  6. COUMADIN [Concomitant]
  7. DIGITEK [Concomitant]
  8. TOPROL-XL [Concomitant]
  9. BETAPACE [Concomitant]
  10. EVISTA [Concomitant]
  11. TOPROL-XL [Concomitant]

REACTIONS (5)
  - ATRIAL FIBRILLATION [None]
  - FEELING ABNORMAL [None]
  - PAIN IN EXTREMITY [None]
  - SWELLING FACE [None]
  - TINNITUS [None]
